FAERS Safety Report 9380332 (Version 6)
Quarter: 2014Q2

REPORT INFORMATION
  Report Type: Spontaneous
  Country: US (occurrence: US)
  Receive Date: 20130702
  Receipt Date: 20140507
  Transmission Date: 20141212
  Serious: Yes (Hospitalization, Disabling, Other)
  Sender: FDA-Public Use
  Company Number: US-009507513-1306USA013145

PATIENT
  Sex: Female
  Weight: 72.56 kg

DRUGS (4)
  1. FOSAMAX [Suspect]
     Indication: OSTEOPOROSIS
     Dosage: 70 MG, QW
     Route: 048
     Dates: start: 2000
  2. ALENDRONATE SODIUM [Suspect]
     Indication: OSTEOPOROSIS
     Dosage: 70 MG, UNK
     Route: 048
     Dates: start: 20080325, end: 20101112
  3. CALCIUM (UNSPECIFIED) (+) VITAMIN D (UNSPECIFIED) [Concomitant]
     Dosage: 600 MG, QD
     Dates: start: 2000
  4. COUMADIN [Concomitant]
     Dosage: UNK
     Dates: start: 1997

REACTIONS (25)
  - Femur fracture [Not Recovered/Not Resolved]
  - Intramedullary rod insertion [Not Recovered/Not Resolved]
  - Skeletal injury [Unknown]
  - Joint injury [Unknown]
  - Colectomy [Unknown]
  - Hypophagia [Unknown]
  - Urinary tract infection [Unknown]
  - Pathological fracture [Unknown]
  - Foot fracture [Unknown]
  - Hypertension [Unknown]
  - Deep vein thrombosis [Unknown]
  - Irritable bowel syndrome [Unknown]
  - Osteopenia [Unknown]
  - Poor quality sleep [Unknown]
  - Hand fracture [Unknown]
  - Radius fracture [Unknown]
  - Foot fracture [Unknown]
  - Gastroenteritis [Unknown]
  - Large intestine polyp [Unknown]
  - Osteoarthritis [Unknown]
  - Anxiety [Unknown]
  - Blood cholesterol increased [Unknown]
  - Pain in extremity [Unknown]
  - Musculoskeletal pain [Unknown]
  - Gastrooesophageal reflux disease [Unknown]
